FAERS Safety Report 13383899 (Version 2)
Quarter: 2017Q1

REPORT INFORMATION
  Report Type: Report from Study
  Country: US (occurrence: US)
  Receive Date: 20170329
  Receipt Date: 20170330
  Transmission Date: 20170429
  Serious: Yes (Hospitalization)
  Sender: FDA-Public Use
  Company Number: -ASTRAZENECA-2017SE32310

PATIENT
  Age: 47 Year
  Sex: Female
  Weight: 67.7 kg

DRUGS (11)
  1. COMPAZINE [Concomitant]
     Active Substance: PROCHLORPERAZINE MALEATE
     Indication: NAUSEA
     Dosage: 10.0MG AS REQUIRED
     Dates: start: 20150902
  2. OXYCODONE [Concomitant]
     Active Substance: OXYCODONE
     Indication: PAIN
     Dosage: 5.0MG AS REQUIRED
     Dates: start: 20170127
  3. ONDANSETRON [Concomitant]
     Active Substance: ONDANSETRON
     Indication: NAUSEA
     Dosage: 8.0MG AS REQUIRED
     Dates: start: 20170208
  4. OLAPARIB [Suspect]
     Active Substance: OLAPARIB
     Indication: METASTATIC SQUAMOUS CELL CARCINOMA
     Dosage: 200 MG, UNK
     Route: 048
     Dates: start: 20170201, end: 20170315
  5. LANSOPRAZOLE. [Concomitant]
     Active Substance: LANSOPRAZOLE
     Indication: GASTROOESOPHAGEAL REFLUX DISEASE
     Dates: start: 201007
  6. MULTIVITAMIN [Concomitant]
     Active Substance: VITAMINS
     Indication: SUPPLEMENTATION THERAPY
     Dosage: UNK, QD
     Dates: start: 201511
  7. AZD1775 [Suspect]
     Active Substance: INVESTIGATIONAL PRODUCT
     Indication: METASTATIC SQUAMOUS CELL CARCINOMA
     Dosage: 175 MG, UNK
     Route: 048
     Dates: start: 20170208, end: 20170315
  8. ZOLOFT [Concomitant]
     Active Substance: SERTRALINE HYDROCHLORIDE
     Indication: DEPRESSION
     Dosage: 100 MG, UNK
     Dates: start: 201403
  9. XANAX [Concomitant]
     Active Substance: ALPRAZOLAM
     Indication: ANXIETY
     Dosage: 0.5MG AS REQUIRED
     Dates: start: 201603
  10. SINGULAIR [Concomitant]
     Active Substance: MONTELUKAST SODIUM
     Indication: HYPERSENSITIVITY
     Dosage: 10 MG, UNK
     Dates: start: 2008
  11. DEXAMETHASONE. [Concomitant]
     Active Substance: DEXAMETHASONE
     Indication: NAUSEA
     Dosage: 2.0MG AS REQUIRED
     Dates: start: 20170208

REACTIONS (1)
  - Bile duct obstruction [Recovering/Resolving]

NARRATIVE: CASE EVENT DATE: 20170315
